FAERS Safety Report 16959362 (Version 1)
Quarter: 2019Q4

REPORT INFORMATION
  Report Type: Spontaneous
  Country: TW (occurrence: TW)
  Receive Date: 20191025
  Receipt Date: 20191025
  Transmission Date: 20200122
  Serious: Yes (Other)
  Sender: FDA-Public Use
  Company Number: TW-SUN PHARMACEUTICAL INDUSTRIES LTD-2019RR-225343

PATIENT
  Age: 64 Year
  Sex: Male

DRUGS (2)
  1. ZOLEDRONIC ACID [Suspect]
     Active Substance: ZOLEDRONIC ACID
     Indication: HYPERCALCAEMIA
     Dosage: 4 MILLIGRAM, SINGLE-DOSE
     Route: 042
  2. PAMIDRONATE [Suspect]
     Active Substance: PAMIDRONATE DISODIUM
     Indication: HYPERCALCAEMIA
     Dosage: 90 MILLIGRAM, UNK
     Route: 042

REACTIONS (4)
  - Drug ineffective [Unknown]
  - Medication error [Unknown]
  - Hypotension [Unknown]
  - Diarrhoea [Unknown]
